FAERS Safety Report 5306695-2 (Version None)
Quarter: 2007Q2

REPORT INFORMATION
  Report Type: 
  Country: None (occurrence: None)
  Receive Date: 20070424
  Receipt Date: 20070416
  Transmission Date: 20071010
  Serious: Yes (Other)
  Sender: FDA-Public Use
  Company Number: JP-PFIZER INC-2007030892

PATIENT
  Sex: Male

DRUGS (2)
  1. SOLU-MEDROL [Suspect]
     Indication: JUVENILE ARTHRITIS
     Route: 042
     Dates: start: 20041001
  2. ALL OTHER THERAPEUTIC PRODUCTS [Concomitant]

REACTIONS (3)
  - HEPATIC FAILURE [None]
  - LIVER DISORDER [None]
  - TRANSAMINASES INCREASED [None]
